FAERS Safety Report 6608644-3 (Version None)
Quarter: 2010Q1

REPORT INFORMATION
  Report Type: 
  Country: None (occurrence: None)
  Receive Date: 20100226
  Receipt Date: 20100226
  Transmission Date: 20100710
  Serious: No
  Sender: FDA-Public Use
  Company Number: None

PATIENT
  Age: 10 Year
  Sex: Male
  Weight: 66.6788 kg

DRUGS (5)
  1. LAMOTRIGINE [Suspect]
     Dosage: 50MG PO
     Route: 048
  2. QUERIAPINE [Concomitant]
  3. ALBUTEROL SULATE [Concomitant]
  4. MIRALAX [Concomitant]
  5. DIPHENHYDRAMINE HYDROCHLORIDE [Concomitant]

REACTIONS (4)
  - BLOOD PRESSURE INCREASED [None]
  - HEART RATE INCREASED [None]
  - RASH ERYTHEMATOUS [None]
  - RASH PAPULAR [None]
